FAERS Safety Report 14254900 (Version 6)
Quarter: 2022Q2

REPORT INFORMATION
  Report Type: Spontaneous
  Country: ES (occurrence: ES)
  Receive Date: 20171206
  Receipt Date: 20220511
  Transmission Date: 20220721
  Serious: Yes (Life-Threatening, Hospitalization, Other)
  Sender: FDA-Public Use
  Company Number: ES-AUROBINDO-AUR-APL-2017-44494

PATIENT
  Age: 78 Year
  Sex: Female

DRUGS (13)
  1. LEVOFLOXACIN [Suspect]
     Active Substance: LEVOFLOXACIN
     Indication: Meningoencephalitis herpetic
     Dosage: 500 MILLIGRAM, ONCE A DAY, NEXT 14 DAY
     Route: 042
  2. LEVOFLOXACIN [Suspect]
     Active Substance: LEVOFLOXACIN
     Dosage: 500 MILLIGRAM, TWO TIMES A DAY, 1ST DAY
     Route: 042
  3. ACYCLOVIR [Suspect]
     Active Substance: ACYCLOVIR
     Indication: Encephalitis autoimmune
     Dosage: 30 MILLIGRAM/KILOGRAM, ONCE A DAY
     Route: 042
  4. ACYCLOVIR [Suspect]
     Active Substance: ACYCLOVIR
     Dosage: 10 MILLIGRAM/KILOGRAM, 3 TIMES A DAY (Q8H)
     Route: 042
  5. INFLUENZA VIRUS VACCINE [Suspect]
     Active Substance: INFLUENZA VIRUS VACCINE
     Indication: Prophylaxis
     Dosage: UNK
     Route: 065
  6. SERTRALINE [Concomitant]
     Active Substance: SERTRALINE HYDROCHLORIDE
     Indication: Depression
     Dosage: UNK
     Route: 048
  7. METHYLPREDNISOLONE [Concomitant]
     Active Substance: METHYLPREDNISOLONE
     Indication: Encephalitis autoimmune
     Dosage: 500 MILLIGRAM
     Route: 042
  8. METHYLPREDNISOLONE [Concomitant]
     Active Substance: METHYLPREDNISOLONE
     Dosage: 500 MILLIGRAM, ONCE A DAY (QD)
     Route: 042
  9. METHYLPREDNISOLONE [Concomitant]
     Active Substance: METHYLPREDNISOLONE
     Dosage: 30 GRAM, ONCE A DAY (QD)
     Route: 042
  10. PREDNISONE [Concomitant]
     Active Substance: PREDNISONE
     Indication: Encephalitis autoimmune
     Dosage: 60 MILLIGRAM, ONCE A DAY
     Route: 048
  11. ENOXAPARIN [Concomitant]
     Active Substance: ENOXAPARIN
     Indication: Product used for unknown indication
     Dosage: 0.91 MILLIGRAM/KILOGRAM, ONCE A DAY
     Route: 058
  12. HUMAN IMMUNOGLOBULIN G [Concomitant]
     Active Substance: HUMAN IMMUNOGLOBULIN G
     Indication: Encephalitis autoimmune
     Dosage: UNK
     Route: 065
  13. WARFARIN [Concomitant]
     Active Substance: WARFARIN
     Indication: Product used for unknown indication
     Dosage: UNK
     Route: 065

REACTIONS (26)
  - Factor XIII deficiency [Recovered/Resolved]
  - Pleocytosis [Recovered/Resolved]
  - Pancytopenia [Recovered/Resolved]
  - Haematoma muscle [Recovered/Resolved]
  - Aphasia [Recovered/Resolved]
  - Anaemia [Recovered/Resolved]
  - Nervous system disorder [Recovered/Resolved]
  - Encephalitis autoimmune [Recovered/Resolved]
  - Depression [Recovered/Resolved]
  - Meningitis aseptic [Recovered/Resolved]
  - Hemiparesis [Recovered/Resolved]
  - Herpes simplex encephalitis [Recovered/Resolved]
  - Speech disorder [Recovered/Resolved]
  - Condition aggravated [Recovered/Resolved]
  - Haemorrhagic disorder [Recovered/Resolved]
  - Partial seizures [Recovered/Resolved]
  - Disorientation [Recovered/Resolved]
  - Coagulopathy [Recovered/Resolved]
  - Erythema [Recovered/Resolved]
  - Gait disturbance [Recovered/Resolved]
  - Peripheral swelling [Recovered/Resolved]
  - Movement disorder [Recovered/Resolved]
  - Psychotic symptom [Recovered/Resolved]
  - Pyrexia [Recovered/Resolved]
  - Factor XIII Inhibition [Recovered/Resolved]
  - Haemoglobin decreased [Recovered/Resolved]
